FAERS Safety Report 21294477 (Version 1)
Quarter: 2022Q3

REPORT INFORMATION
  Report Type: Spontaneous
  Country: US (occurrence: US)
  Receive Date: 20220905
  Receipt Date: 20220905
  Transmission Date: 20221026
  Serious: No
  Sender: FDA-Public Use
  Company Number: US-ELI_LILLY_AND_COMPANY-US202208015927

PATIENT
  Age: 30 Year

DRUGS (1)
  1. BEBTELOVIMAB [Suspect]
     Active Substance: BEBTELOVIMAB
     Indication: COVID-19
     Dosage: UNK, SINGLE
     Dates: start: 20220829, end: 20220829

REACTIONS (6)
  - Flushing [Unknown]
  - Dizziness [Unknown]
  - Heart rate increased [Unknown]
  - Nasal dryness [Unknown]
  - Nasal congestion [Unknown]
  - Somnolence [Unknown]

NARRATIVE: CASE EVENT DATE: 20220829
